FAERS Safety Report 10732781 (Version 2)
Quarter: 2015Q1

REPORT INFORMATION
  Report Type: Spontaneous
  Country: JP (occurrence: None)
  Receive Date: 20150120
  Receipt Date: 20150209
  Transmission Date: 20150721
  Serious: Yes (Hospitalization)
  Sender: FDA-Public Use
  Company Number: JP-2015VAL000026

PATIENT
  Age: 85 Year
  Sex: Female

DRUGS (3)
  1. EDIROL [Suspect]
     Active Substance: ELDECALCITOL
     Indication: OSTEOPOROSIS
     Route: 048
     Dates: start: 20141208, end: 20150106
  2. ROCALTROL [Suspect]
     Active Substance: CALCITRIOL
     Indication: OSTEOPOROSIS
     Dosage: DOSAGE IS UNCERTAIN, ORAL
     Route: 048
     Dates: start: 20150106, end: 20150106
  3. BONVIVA [Suspect]
     Active Substance: IBANDRONATE SODIUM
     Indication: OSTEOPOROSIS
     Dosage: 1 MG, 1 IN 1 M, INJECTION, INTRAVNEOUS
     Route: 042
     Dates: start: 201412, end: 201501

REACTIONS (4)
  - Hypercalcaemia [None]
  - Drug administration error [None]
  - Renal impairment [None]
  - Off label use [None]

NARRATIVE: CASE EVENT DATE: 201412
